FAERS Safety Report 12437915 (Version 2)
Quarter: 2016Q3

REPORT INFORMATION
  Report Type: Spontaneous
  Country: GR (occurrence: GR)
  Receive Date: 20160606
  Receipt Date: 20160922
  Transmission Date: 20161109
  Serious: Yes (Other)
  Sender: FDA-Public Use
  Company Number: GR-UCBSA-2016020649

PATIENT
  Age: 69 Year
  Sex: Male

DRUGS (2)
  1. VIMPAT [Suspect]
     Active Substance: LACOSAMIDE
     Dosage: 100 MG, 2X/DAY (BID)
  2. VIMPAT [Suspect]
     Active Substance: LACOSAMIDE
     Indication: EPILEPSY
     Dosage: 100MG IN THE MORNING AND 150MG IN THE EVENING, 2X/DAY (BID)

REACTIONS (6)
  - Coma [Unknown]
  - Grip strength decreased [Unknown]
  - Visual impairment [Unknown]
  - Head injury [Unknown]
  - Epilepsy [Recovered/Resolved]
  - Cerebral haemorrhage [Unknown]

NARRATIVE: CASE EVENT DATE: 20151024
